FAERS Safety Report 16246461 (Version 5)
Quarter: 2019Q4

REPORT INFORMATION
  Report Type: Spontaneous
  Country: US (occurrence: US)
  Receive Date: 20190427
  Receipt Date: 20191007
  Transmission Date: 20200122
  Serious: No
  Sender: FDA-Public Use
  Company Number: US-BIOGEN-2019BI00730200

PATIENT
  Age: 32 Year
  Sex: Female

DRUGS (4)
  1. TYSABRI [Suspect]
     Active Substance: NATALIZUMAB
     Indication: MULTIPLE SCLEROSIS
     Route: 065
     Dates: start: 20161213, end: 20190121
  2. TYSABRI [Suspect]
     Active Substance: NATALIZUMAB
     Route: 048
     Dates: start: 20151026
  3. TYSABRI [Suspect]
     Active Substance: NATALIZUMAB
     Route: 048
     Dates: start: 20131118
  4. TYSABRI [Suspect]
     Active Substance: NATALIZUMAB
     Route: 065

REACTIONS (4)
  - Pruritus [Not Recovered/Not Resolved]
  - Product dose omission [Unknown]
  - Joint swelling [Unknown]
  - Multiple sclerosis relapse [Not Recovered/Not Resolved]

NARRATIVE: CASE EVENT DATE: 20190228
